FAERS Safety Report 18520136 (Version 2)
Quarter: 2024Q3

REPORT INFORMATION
  Report Type: Spontaneous
  Country: BG (occurrence: BG)
  Receive Date: 20201118
  Receipt Date: 20240701
  Transmission Date: 20241017
  Serious: Yes (Death, Other)
  Sender: BAXTER
  Company Number: BG-EMA-DD-20201104-KUMARVN_P-101613

PATIENT
  Age: 19 Year
  Sex: Male

DRUGS (34)
  1. FUROSEMIDE [Suspect]
     Active Substance: FUROSEMIDE
     Dosage: 10 MG/ML - AS PRESCRIBED (DOSAGE FORM: AMP)
     Route: 065
     Dates: start: 2020
  2. SODIUM CHLORIDE [Suspect]
     Active Substance: SODIUM CHLORIDE
     Dosage: 0.9% (100 ML ECO-BOTTLE BY PRESCRIPTION)
     Route: 065
     Dates: start: 2020
  3. TOCILIZUMAB [Suspect]
     Active Substance: TOCILIZUMAB
     Indication: COVID-19 pneumonia
     Dosage: 200 MG/20ML (ADDITIONAL INFORMATION ON DRUG: OFF LABEL USE)
     Route: 065
     Dates: start: 20200101
  4. TOCILIZUMAB [Suspect]
     Active Substance: TOCILIZUMAB
     Dosage: 400 MG/20 ML (ADDITIONAL INFORMATION ON DRUG: OFF LABEL USE)
     Route: 065
     Dates: start: 2020
  5. METOCLOPRAMIDE HYDROCHLORIDE [Suspect]
     Active Substance: METOCLOPRAMIDE HYDROCHLORIDE
     Indication: Product used for unknown indication
     Dosage: 10 MG - 2 ML - AS PRESCRIBED, START DATE: 2020 (DOSAGE FORM: AMP)
     Route: 065
  6. SACCHAROMYCES CEREVISIAE [Suspect]
     Active Substance: SACCHAROMYCES CEREVISIAE
     Indication: Product used for unknown indication
     Dosage: 250 MG X 10 - 2X2 CAPS
     Route: 065
     Dates: start: 2020
  7. CHLOROQUINE PHOSPHATE [Suspect]
     Active Substance: CHLOROQUINE PHOSPHATE
     Indication: Product used for unknown indication
     Dosage: 250 MG (2X1 TABLETS)
     Route: 065
     Dates: start: 2020
  8. BROMHEXINE [Suspect]
     Active Substance: BROMHEXINE
     Indication: Product used for unknown indication
     Dosage: 4 MG 2 ML - AS PRESCRIBED (DOSAGE FORM:AMP)
     Route: 065
     Dates: start: 2020
  9. METAMIZOLE [Suspect]
     Active Substance: METAMIZOLE
     Indication: Product used for unknown indication
     Dosage: X 2 CAPS AMP. 500MG/ML 2 ML
     Route: 065
     Dates: start: 2020
  10. VANCOCIN [Suspect]
     Active Substance: VANCOMYCIN HYDROCHLORIDE
     Indication: Product used for unknown indication
     Dosage: 1 G (2X1.0)
     Route: 065
     Dates: start: 2020
  11. DEXAMETHASONE [Suspect]
     Active Substance: DEXAMETHASONE
     Indication: Product used for unknown indication
     Dosage: 4 MG/1 ML - 2X2 AMP
     Route: 065
     Dates: start: 2020
  12. AZITHROMYCIN [Suspect]
     Active Substance: AZITHROMYCIN
     Indication: Product used for unknown indication
     Dosage: UNK
     Route: 065
     Dates: start: 2020
  13. MIDAZOLAM [Suspect]
     Active Substance: MIDAZOLAM
     Indication: Product used for unknown indication
     Dosage: 5 MG - 5 5 ML - IN PERFUSION (DOSAGE FORM: AMP)
     Route: 065
     Dates: start: 2020
  14. ESOMEPRAZOLE [Suspect]
     Active Substance: ESOMEPRAZOLE
     Indication: Product used for unknown indication
     Dosage: 40 MG (2X1 VIAL)
     Route: 065
     Dates: start: 2020
  15. MEROPENEM [Suspect]
     Active Substance: MEROPENEM
     Indication: Product used for unknown indication
     Dosage: 1 G (3X1.0) (DOSAGE FORM: VIAL)
     Route: 065
     Dates: start: 2020
  16. AZITHROMYCIN [Suspect]
     Active Substance: AZITHROMYCIN
     Indication: Product used for unknown indication
     Dosage: 500 MILLIGRAM (DOSAGE FORM:VIAL)
     Route: 065
     Dates: start: 2020
  17. FAMOTIDINE [Suspect]
     Active Substance: FAMOTIDINE
     Indication: Product used for unknown indication
     Dosage: 20 MG (2X1 VIAL) (DOSAGE FORM: AMP)
     Route: 065
     Dates: start: 2020
  18. ENOXAPARIN SODIUM [Suspect]
     Active Substance: ENOXAPARIN SODIUM
     Indication: Product used for unknown indication
     Dosage: 60 MG/0.60 ML - X 1VIAL (DOSAGE FORM: AMP)
     Route: 065
     Dates: start: 2020
  19. METHYLPREDNISOLONE [Suspect]
     Active Substance: METHYLPREDNISOLONE
     Indication: Product used for unknown indication
     Dosage: 40 MG / 2 ML (DOSAGE FORM: AMP)
     Route: 065
     Dates: start: 2020
  20. NADROPARIN CALCIUM [Suspect]
     Active Substance: NADROPARIN CALCIUM
     Indication: Product used for unknown indication
     Dosage: 0.6 ML (1 VIAL MG/ML AS PRESCRIBED), START DATE: 2020
     Route: 065
     Dates: start: 2020
  21. MELOXICAM\PRIDINOL MESILATE [Suspect]
     Active Substance: MELOXICAM\PRIDINOL MESILATE
     Indication: Product used for unknown indication
     Dosage: 100 ML (5 MG/ML), START DATE:2020
     Route: 065
     Dates: start: 2020
  22. CALCIUM CHLORIDE\MAGNESIUM CHLORIDE\POTASSIUM CHLORIDE\SODIUM ACETATE\ [Suspect]
     Active Substance: CALCIUM CHLORIDE\MAGNESIUM CHLORIDE\POTASSIUM CHLORIDE\SODIUM ACETATE\SODIUM CHLORIDE
     Indication: Product used for unknown indication
     Dosage: 500 L - ECO-VIAL - X500 ML
     Route: 065
     Dates: start: 2020
  23. CALCIUM GLUCONATE [Suspect]
     Active Substance: CALCIUM GLUCONATE
     Indication: Product used for unknown indication
     Dosage: 8.94 MG/ML - 10 ML - 2X1 AMP
     Route: 065
     Dates: start: 2020
  24. DEXTROSE [Suspect]
     Active Substance: DEXTROSE\DEXTROSE MONOHYDRATE
     Indication: Product used for unknown indication
     Dosage: 500 ML (BY PRESCRIPTION)
     Route: 042
  25. CITICOLINE [Suspect]
     Active Substance: CITICOLINE
     Indication: Product used for unknown indication
     Dosage: 1000 MG 4 ML 2X1 AMP
     Route: 065
     Dates: start: 2020
  26. CLONIDINE HYDROCHLORIDE [Suspect]
     Active Substance: CLONIDINE HYDROCHLORIDE
     Indication: Product used for unknown indication
     Dosage: 0.15 MG/ML -AS PRESCRIBED, START DATE:2020 (DOSAGE FORM: AMP)
     Route: 065
     Dates: start: 2020
  27. ALBUMIN HUMAN [Suspect]
     Active Substance: ALBUMIN HUMAN
     Indication: Product used for unknown indication
     Dosage: 10 PERCENT, TOTAL
     Route: 065
     Dates: start: 2020
  28. DIETARY SUPPLEMENT\HERBALS\MILK THISTLE [Suspect]
     Active Substance: MILK THISTLE
     Indication: Product used for unknown indication
     Dosage: 90 MG X 30 PCS. - ACCORDING TO THE SCHEME
     Route: 065
     Dates: start: 2020
  29. MEROPENEM [Suspect]
     Active Substance: MEROPENEM
     Indication: Product used for unknown indication
     Dosage: 1000 MG (3X1.0) (DOSAGE FORM: VIAL)
     Route: 065
     Dates: start: 2020
  30. ACETAMINOPHEN [Suspect]
     Active Substance: ACETAMINOPHEN
     Indication: Product used for unknown indication
     Dosage: 100 ML (10 MG/ML)
     Route: 065
     Dates: start: 2020
  31. VITAMIN C [Suspect]
     Active Substance: ASCORBIC ACID
     Indication: Product used for unknown indication
     Dosage: 10 5 5 ML 2X4 AMP, (DOSAGE FORM:AMPOULE)
     Route: 065
     Dates: start: 2020
  32. FLUCONAZOLE [Suspect]
     Active Substance: FLUCONAZOLE
     Indication: Product used for unknown indication
     Dosage: 2 MG/1 ML - 100 ML - X 2 VIAL (DOSAGE FORM:VIAL)
     Route: 065
     Dates: start: 2020
  33. AMINO ACIDS\DEXTROSE\ELECTROLYTES NOS\SOYBEAN OIL [Suspect]
     Active Substance: AMINO ACIDS\DEXTROSE\ELECTROLYTES NOS\SOYBEAN OIL
     Indication: Product used for unknown indication
     Dosage: 875 ML - 2 PCS
     Route: 065
     Dates: start: 2020
  34. SINEQUAN [Suspect]
     Active Substance: DOXEPIN HYDROCHLORIDE
     Indication: Product used for unknown indication
     Dosage: 2 DOSAGE FORM (X 2 CAPS)
     Route: 065
     Dates: start: 2020

REACTIONS (14)
  - Acute respiratory failure [Fatal]
  - Confusional state [Fatal]
  - Hallucination [Fatal]
  - Hypertension [Fatal]
  - COVID-19 pneumonia [Fatal]
  - Encephalopathy [Fatal]
  - Brain oedema [Fatal]
  - Tachypnoea [Fatal]
  - Cardiovascular insufficiency [Fatal]
  - Hypoxia [Fatal]
  - Embolism [Fatal]
  - Pulmonary oedema [Fatal]
  - Off label use [Unknown]
  - Intentional product use issue [Unknown]

NARRATIVE: CASE EVENT DATE: 20200712
